FAERS Safety Report 9813021 (Version 1)
Quarter: 2014Q1

REPORT INFORMATION
  Report Type: Spontaneous
  Country: PL (occurrence: PL)
  Receive Date: 20140113
  Receipt Date: 20140113
  Transmission Date: 20141002
  Serious: Yes (Life-Threatening, Other)
  Sender: FDA-Public Use
  Company Number: PL-ASTELLAS-2014EU000091

PATIENT
  Sex: Female

DRUGS (4)
  1. PROGRAF [Suspect]
     Indication: EXPOSURE DURING PREGNANCY
     Dosage: 2 MG, BID
     Route: 064
  2. PROGRAF [Suspect]
     Indication: EXPOSURE DURING BREAST FEEDING
     Dosage: 3 MG, TID
     Route: 064
  3. PREDNISONE [Suspect]
     Indication: EXPOSURE DURING PREGNANCY
     Dosage: 7.5 MG, UNKNOWN/D
     Route: 064
  4. PREDNISONE [Suspect]
     Indication: EXPOSURE DURING BREAST FEEDING

REACTIONS (11)
  - Premature baby [Unknown]
  - Resuscitation [Unknown]
  - Hypoglycaemia [Unknown]
  - Hyperbilirubinaemia [Unknown]
  - Hypothyroidism [Unknown]
  - Anaemia [Unknown]
  - Calcium metabolism disorder [Unknown]
  - Phosphorus metabolism disorder [Unknown]
  - Hypotonia neonatal [Unknown]
  - Muscle rigidity [Unknown]
  - Upper respiratory tract infection [Unknown]
